FAERS Safety Report 9753732 (Version 1)
Quarter: 2013Q4

REPORT INFORMATION
  Report Type: Spontaneous
  Country: US (occurrence: US)
  Receive Date: 20131213
  Receipt Date: 20131213
  Transmission Date: 20140711
  Serious: Yes (Other)
  Sender: FDA-Public Use
  Company Number: US-GILEAD-2010-0026709

PATIENT
  Age: 83 Year
  Sex: Male

DRUGS (2)
  1. LETAIRIS [Suspect]
     Indication: PULMONARY ARTERIAL HYPERTENSION
     Route: 048
     Dates: start: 20090910
  2. ADCIRCA [Concomitant]

REACTIONS (3)
  - Cardiac failure congestive [Recovering/Resolving]
  - Fluid retention [Recovering/Resolving]
  - Weight increased [Unknown]
